FAERS Safety Report 9071620 (Version 5)
Quarter: 2013Q2

REPORT INFORMATION
  Report Type: Report from Study
  Country: IT (occurrence: IT)
  Receive Date: 20130129
  Receipt Date: 20130607
  Transmission Date: 20140414
  Serious: Yes (Life-Threatening, Hospitalization)
  Sender: FDA-Public Use
  Company Number: IT-ROCHE-1076892

PATIENT
  Age: 62 Year
  Sex: Male
  Weight: 74 kg

DRUGS (5)
  1. VEMURAFENIB [Suspect]
     Indication: METASTATIC MALIGNANT MELANOMA
     Dosage: LAST DOSE PRIOR TO THE SAE ON 03/JUN/2012
     Route: 048
     Dates: start: 20120312, end: 20120604
  2. VASORETIC [Concomitant]
     Route: 065
     Dates: start: 2007
  3. HALCION [Concomitant]
     Route: 065
     Dates: start: 2011
  4. SOLDESAM [Concomitant]
     Route: 065
     Dates: start: 20120227
  5. LANSOPRAZOLE [Concomitant]
     Route: 065
     Dates: start: 20120227

REACTIONS (1)
  - Neutropenia [Recovered/Resolved]
